FAERS Safety Report 6285646-0 (Version None)
Quarter: 2009Q3

REPORT INFORMATION
  Report Type: 
  Country: None (occurrence: None)
  Receive Date: 20090724
  Receipt Date: 20090716
  Transmission Date: 20100115
  Serious: Yes (Other)
  Sender: FDA-Public Use
  Company Number: 2009008652

PATIENT
  Sex: Male

DRUGS (1)
  1. AMRIX [Suspect]
     Indication: MUSCLE SPASMS
     Dosage: ORAL
     Route: 048

REACTIONS (4)
  - MYOCARDITIS [None]
  - NASOPHARYNGITIS [None]
  - SINUSITIS [None]
  - VIRAL INFECTION [None]
